FAERS Safety Report 24308092 (Version 1)
Quarter: 2024Q3

REPORT INFORMATION
  Report Type: Other
  Country: US (occurrence: US)
  Receive Date: 20240911
  Receipt Date: 20240911
  Transmission Date: 20241017
  Serious: No
  Sender: SIGMA TAU
  Company Number: US-LEADIANT BIOSCIENCES, INC.-2023STPI000455

PATIENT
  Sex: Female

DRUGS (1)
  1. MATULANE [Suspect]
     Active Substance: PROCARBAZINE HYDROCHLORIDE
     Indication: Brain neoplasm malignant
     Dosage: 50 MILLIGRAMS, 2 CAPSLES (100MG TOTAL) DAILY ON DAYS 8 TO 21 OF EVERY 42 DAY CYCLE
     Route: 048
     Dates: start: 20231109

REACTIONS (1)
  - Dysuria [Unknown]
